FAERS Safety Report 7974532-3 (Version None)
Quarter: 2011Q4

REPORT INFORMATION
  Report Type: 
  Country: None (occurrence: None)
  Receive Date: 20111213
  Receipt Date: 20111207
  Transmission Date: 20120403
  Serious: Yes (Other)
  Sender: FDA-Public Use
  Company Number: IN-ABBOTT-11P-078-0881864-00

PATIENT
  Age: 12 Year
  Sex: Male

DRUGS (1)
  1. VALPROIC ACID [Suspect]
     Indication: PETIT MAL EPILEPSY
     Route: 048
     Dates: start: 20030101

REACTIONS (3)
  - PAROSMIA [None]
  - CONVULSION [None]
  - PRODUCT COUNTERFEIT [None]
